FAERS Safety Report 5274626-X (Version None)
Quarter: 2007Q1

REPORT INFORMATION
  Report Type: 
  Country: None (occurrence: None)
  Receive Date: 20070320
  Receipt Date: 20070312
  Transmission Date: 20070707
  Serious: Yes (Death)
  Sender: FDA-Public Use
  Company Number: 235043

PATIENT
  Age: 86 Year
  Sex: Male

DRUGS (7)
  1. RANIBIZUMAB(RANIBIZUMAB) PWDR + SOLVENT, INJECTION SOLN [Suspect]
     Indication: MACULAR DEGENERATION
     Dosage: 1/MONTH, INTRAVITREAL
     Route: 050
  2. PROSCAR [Concomitant]
  3. ASPIRIN [Concomitant]
  4. HYTRIN [Concomitant]
  5. FENTANYL CITRATE [Concomitant]
  6. OXYCODONE HCL [Concomitant]
  7. ADVIL [Concomitant]

REACTIONS (3)
  - LUNG CANCER METASTATIC [None]
  - METASTASES TO LIVER [None]
  - METASTASES TO SPINE [None]
